FAERS Safety Report 24786352 (Version 1)
Quarter: 2024Q4

REPORT INFORMATION
  Report Type: Spontaneous
  Country: US (occurrence: None)
  Receive Date: 20241230
  Receipt Date: 20241230
  Transmission Date: 20250114
  Serious: No
  Sender: ENCUBE ETHICALS
  Company Number: US-Encube-001516

PATIENT
  Age: 87 Year
  Sex: Female

DRUGS (8)
  1. CICLOPIROX [Suspect]
     Active Substance: CICLOPIROX
     Indication: Onychomycosis
     Dosage: SOLUTION USED ONLY ONCE
     Dates: start: 20241211, end: 20241211
  2. TYLENOL [Concomitant]
     Active Substance: ACETAMINOPHEN
  3. VIT-C [Concomitant]
  4. CRANBERRY [Concomitant]
     Active Substance: CRANBERRY
     Indication: Urinary tract infection
     Route: 048
  5. GABAPENTIN [Concomitant]
     Active Substance: GABAPENTIN
     Indication: Neuropathy peripheral
  6. HYDROQUINONE [Concomitant]
     Active Substance: HYDROQUINONE
     Indication: Pain
     Dosage: PILL
  7. LOSARTAN [Concomitant]
     Active Substance: LOSARTAN
  8. METFORMIN [Concomitant]
     Active Substance: METFORMIN HYDROCHLORIDE
     Indication: Blood glucose fluctuation

REACTIONS (3)
  - Inflammation [Not Recovered/Not Resolved]
  - Pain [Not Recovered/Not Resolved]
  - Cyanosis [Not Recovered/Not Resolved]

NARRATIVE: CASE EVENT DATE: 20241211
